FAERS Safety Report 11594571 (Version 2)
Quarter: 2015Q4

REPORT INFORMATION
  Report Type: Spontaneous
  Country: JP (occurrence: JP)
  Receive Date: 20151005
  Receipt Date: 20151225
  Transmission Date: 20160304
  Serious: Yes (Death)
  Sender: FDA-Public Use
  Company Number: JP-ROCHE-1642070

PATIENT
  Age: 88 Year
  Sex: Female
  Weight: 34 kg

DRUGS (2)
  1. ACTIVACIN [Suspect]
     Active Substance: ALTEPLASE
     Indication: CEREBRAL ARTERY EMBOLISM
     Route: 042
  2. EDARAVONE [Concomitant]
     Active Substance: EDARAVONE
     Indication: CEREBRAL ARTERY EMBOLISM
     Route: 042
     Dates: start: 20140130, end: 20140130

REACTIONS (2)
  - Aortic dissection [Fatal]
  - Haemothorax [Fatal]

NARRATIVE: CASE EVENT DATE: 20140130
